FAERS Safety Report 9059912 (Version 1)
Quarter: 2013Q1

REPORT INFORMATION
  Report Type: Spontaneous
  Country: US (occurrence: None)
  Receive Date: 20130206
  Receipt Date: 20130206
  Transmission Date: 20140127
  Serious: Yes (Other)
  Sender: FDA-Public Use
  Company Number: None

PATIENT
  Age: 53 Year
  Sex: Female

DRUGS (1)
  1. STIVARGA [Suspect]
     Indication: RECTAL CANCER
     Route: 048
     Dates: start: 20130115

REACTIONS (8)
  - Palmar-plantar erythrodysaesthesia syndrome [None]
  - Gait disturbance [None]
  - Laceration [None]
  - Skin discolouration [None]
  - Pain [None]
  - Rash [None]
  - Rash [None]
  - Rash [None]
